FAERS Safety Report 13618496 (Version 2)
Quarter: 2017Q2

REPORT INFORMATION
  Report Type: Spontaneous
  Country: US (occurrence: US)
  Receive Date: 20170606
  Receipt Date: 20170622
  Transmission Date: 20170830
  Serious: No
  Sender: FDA-Public Use
  Company Number: US-BEH-2017080951

PATIENT
  Age: 34 Year
  Sex: Female
  Weight: 70.3 kg

DRUGS (5)
  1. CEPHALEXIN                         /00145501/ [Concomitant]
     Active Substance: CEPHALEXIN
     Route: 065
  2. SPIRONOLACTONE. [Concomitant]
     Active Substance: SPIRONOLACTONE
     Route: 065
  3. HAEMATE P [Suspect]
     Active Substance: ANTIHEMOPHILIC FACTOR HUMAN
     Indication: VON WILLEBRAND^S DISEASE
     Dosage: 2,800 RCOF UNITS, QD
     Route: 042
     Dates: start: 20170524
  4. XYREM [Concomitant]
     Active Substance: SODIUM OXYBATE
     Route: 065
  5. METHYLPHENIDATE. [Concomitant]
     Active Substance: METHYLPHENIDATE
     Route: 065

REACTIONS (6)
  - Hyperhidrosis [Unknown]
  - Fall [Unknown]
  - Malaise [Unknown]
  - Heart rate decreased [Unknown]
  - Presyncope [Unknown]
  - Head injury [Unknown]

NARRATIVE: CASE EVENT DATE: 20170601
